FAERS Safety Report 21205227 (Version 1)
Quarter: 2022Q3

REPORT INFORMATION
  Report Type: Other
  Country: KR (occurrence: None)
  Receive Date: 20220812
  Receipt Date: 20220812
  Transmission Date: 20221027
  Serious: Yes (Hospitalization)
  Sender: FDA-Public Use
  Company Number: KR-ROCHE-3143722

PATIENT
  Age: 76 Year
  Sex: Female
  Weight: 47.8 kg

DRUGS (11)
  1. ATEZOLIZUMAB [Suspect]
     Active Substance: ATEZOLIZUMAB
     Indication: Triple negative breast cancer
     Dosage: SUBSEQUENT DOSE OF 840 MG OF ATEZOLIZUMAB RECEIVED ON, 20/JUL/2020, 05/AUG/2020, 24/AUG/2020 AND 08/
     Route: 041
     Dates: start: 20200703
  2. PACLITAXEL [Suspect]
     Active Substance: PACLITAXEL
     Indication: Triple negative breast cancer
     Dosage: SUBSEQUENT DOSE OF 100 MG/M SQUARE NABPACLITAXEL WAS RECEIVED ON, 13/JUL/2020, 20/JUL/2020, 05/AUG/2
     Route: 042
     Dates: start: 20200703
  3. LOPAINE [Concomitant]
     Indication: Diarrhoea
     Route: 048
     Dates: start: 20200704
  4. SILENOR [Concomitant]
     Active Substance: DOXEPIN HYDROCHLORIDE
     Indication: Insomnia
     Route: 048
     Dates: start: 20200805
  5. GODEX (SOUTH KOREA) [Concomitant]
     Indication: Hepatitis C
     Route: 048
     Dates: start: 20190405
  6. DIETARY SUPPLEMENT\HERBALS\MILK THISTLE [Concomitant]
     Active Substance: DIETARY SUPPLEMENT\HERBALS\MILK THISTLE
     Indication: Hepatitis C
     Route: 048
     Dates: start: 20190405
  7. PONSTEL [Concomitant]
     Active Substance: MEFENAMIC ACID
     Indication: Breast cancer
     Route: 048
     Dates: start: 20200226
  8. NEURONTIN [Concomitant]
     Active Substance: GABAPENTIN
     Indication: Breast cancer
     Route: 048
     Dates: start: 20200630
  9. SYNTHROID [Concomitant]
     Active Substance: LEVOTHYROXINE SODIUM
     Indication: Hypertension
     Route: 048
     Dates: start: 20200630
  10. CRESTOR [Concomitant]
     Active Substance: ROSUVASTATIN CALCIUM
     Indication: Hyperlipidaemia
     Route: 048
     Dates: start: 20190213
  11. ESWONAMP [Concomitant]
     Route: 048
     Dates: start: 20200630

REACTIONS (1)
  - Diarrhoea [Recovered/Resolved]

NARRATIVE: CASE EVENT DATE: 20200715
